FAERS Safety Report 20356739 (Version 1)
Quarter: 2022Q1

REPORT INFORMATION
  Report Type: Spontaneous
  Country: US (occurrence: None)
  Receive Date: 20220119
  Receipt Date: 20220119
  Transmission Date: 20220423
  Serious: Yes (unspecified)
  Sender: FDA-Public Use
  Company Number: None

PATIENT
  Age: 63 Year
  Sex: Female
  Weight: 76.6 kg

DRUGS (6)
  1. IRINOTECAN [Suspect]
     Active Substance: IRINOTECAN
     Indication: Oesophageal carcinoma
     Dosage: OTHER FREQUENCY : EVERY 2 WEEKS;?
     Route: 042
     Dates: start: 20211228
  2. ATROPINE [Concomitant]
     Active Substance: ATROPINE
     Dates: start: 20211228
  3. PALONOSETRON [Concomitant]
     Active Substance: PALONOSETRON
     Dates: start: 20180627
  4. LEUCOVORIN [Concomitant]
     Active Substance: LEUCOVORIN
     Dates: start: 20190716
  5. FLUOROURACIL [Concomitant]
     Active Substance: FLUOROURACIL
     Dates: start: 20190716
  6. DEXAMETHASONE [Concomitant]
     Active Substance: DEXAMETHASONE
     Dates: start: 20180705

REACTIONS (6)
  - Infusion related reaction [None]
  - Flushing [None]
  - Pruritus [None]
  - Oral pruritus [None]
  - Eye pruritus [None]
  - Therapy interrupted [None]

NARRATIVE: CASE EVENT DATE: 20220111
